FAERS Safety Report 6878303-0 (Version None)
Quarter: 2010Q3

REPORT INFORMATION
  Report Type: 
  Country: None (occurrence: None)
  Receive Date: 20100728
  Receipt Date: 20100719
  Transmission Date: 20110219
  Serious: Yes (Other)
  Sender: FDA-Public Use
  Company Number: US-PFIZER INC-2010090103

PATIENT
  Age: 16 Year
  Sex: Female
  Weight: 56.689 kg

DRUGS (1)
  1. FLAGYL [Suspect]
     Indication: PROPHYLAXIS
     Dosage: UNK
     Route: 048
     Dates: start: 20100521, end: 20100528

REACTIONS (5)
  - ARTHRALGIA [None]
  - JOINT SWELLING [None]
  - JUVENILE ARTHRITIS [None]
  - WEIGHT DECREASED [None]
  - WRONG TECHNIQUE IN DRUG USAGE PROCESS [None]
